FAERS Safety Report 6257758-9 (Version None)
Quarter: 2009Q3

REPORT INFORMATION
  Report Type: 
  Country: None (occurrence: None)
  Receive Date: 20090702
  Receipt Date: 20090617
  Transmission Date: 20100115
  Serious: Yes (Life-Threatening, Hospitalization, Other)
  Sender: FDA-Public Use
  Company Number: DSU-2008-01094

PATIENT
  Age: 56 Year
  Sex: Female

DRUGS (5)
  1. OLMETEC          (OLMESARTAN MEDOXOMIL) (20 MILLIGRAM, TABLET) [Suspect]
     Indication: HYPERTENSION
     Dosage: 40 MG (20 MG, BID) PER ORAL
     Route: 048
     Dates: start: 20080301
  2. LIPITOR                           (ATORVASTATIN CALCIUM) (20 MILLIGRAM [Suspect]
     Indication: HYPERTENSION
     Dosage: 20 MG (20 MG, QD) PER ORAL
     Route: 048
  3. VERAPAMILO                              (VERAPAMIL) [Concomitant]
  4. PLAVIX [Concomitant]
  5. ASPIRIN [Concomitant]

REACTIONS (1)
  - ISCHAEMIC STROKE [None]
